FAERS Safety Report 8390232-2 (Version None)
Quarter: 2012Q2

REPORT INFORMATION
  Report Type: 
  Country: None (occurrence: None)
  Receive Date: 20120529
  Receipt Date: 20120523
  Transmission Date: 20120825
  Serious: Yes (Other)
  Sender: FDA-Public Use
  Company Number: BR-PFIZER INC-2012125644

PATIENT
  Age: 59 Year
  Sex: Female
  Weight: 59 kg

DRUGS (4)
  1. LIPITOR [Concomitant]
     Dosage: STRENGTH 40 MG
     Dates: start: 20110101, end: 20110101
  2. TAMARINE [Concomitant]
     Indication: INTESTINAL CONGESTION
     Dosage: 1 TABLESPOON 1X/DAY
  3. CELEBREX [Suspect]
     Indication: OSTEOARTHRITIS
     Dosage: 200 MG, 1X/DAY
     Route: 048
     Dates: start: 20020101
  4. PAROXETINE [Concomitant]
     Indication: DEPRESSION
     Dosage: 40 MG, 1X/DAY
     Dates: start: 19970101

REACTIONS (6)
  - INTERVERTEBRAL DISC PROTRUSION [None]
  - BODY HEIGHT DECREASED [None]
  - DRUG INEFFECTIVE [None]
  - OESOPHAGEAL DISORDER [None]
  - HIATUS HERNIA [None]
  - PAIN [None]
